FAERS Safety Report 9892486 (Version 1)
Quarter: 2014Q1

REPORT INFORMATION
  Report Type: Spontaneous
  Country: FR (occurrence: FR)
  Receive Date: 20140212
  Receipt Date: 20140212
  Transmission Date: 20141002
  Serious: Yes (Hospitalization)
  Sender: FDA-Public Use
  Company Number: FR-EISAI INC-E2090-03107-SPO-FR

PATIENT
  Age: 0 Year
  Sex: Male
  Weight: 2.39 kg

DRUGS (11)
  1. ZONEGRAN [Suspect]
     Indication: FOETAL EXPOSURE DURING PREGNANCY
     Dosage: 400 MG
     Route: 064
     Dates: start: 201304, end: 20131213
  2. EPITOMAX [Suspect]
     Indication: FOETAL EXPOSURE DURING PREGNANCY
     Dosage: 100 MG
     Route: 064
     Dates: start: 201304, end: 2013
  3. EPITOMAX [Suspect]
     Dosage: 200 MG
     Route: 064
     Dates: start: 2013, end: 20131213
  4. TEGRETOL [Suspect]
     Indication: FOETAL EXPOSURE DURING PREGNANCY
     Dosage: 800 MG
     Route: 064
     Dates: start: 201304, end: 20131213
  5. DIAZEPAM [Suspect]
     Indication: FOETAL EXPOSURE DURING PREGNANCY
     Dosage: 20 MG
     Route: 064
     Dates: start: 201304, end: 20131213
  6. DIAZEPAM [Suspect]
     Dosage: 100 MG
     Route: 064
     Dates: start: 2013, end: 20131213
  7. NOZINAN [Suspect]
     Indication: FOETAL EXPOSURE DURING PREGNANCY
     Dosage: 400 MG
     Route: 064
     Dates: start: 201304, end: 20131213
  8. LAROXYL [Suspect]
     Indication: FOETAL EXPOSURE DURING PREGNANCY
     Dosage: UNKNOWN
     Route: 064
     Dates: end: 20131213
  9. ATARAX [Concomitant]
     Indication: FOETAL EXPOSURE DURING PREGNANCY
     Dosage: 100 MG
     Route: 064
     Dates: start: 201304, end: 201310
  10. NUREFLEX [Concomitant]
     Indication: FOETAL EXPOSURE DURING PREGNANCY
     Route: 064
     Dates: start: 201304, end: 201310
  11. EUPANTOL [Concomitant]
     Indication: FOETAL EXPOSURE DURING PREGNANCY
     Dosage: 40 MG
     Route: 064
     Dates: start: 201304, end: 201310

REACTIONS (4)
  - Drug withdrawal syndrome neonatal [Recovered/Resolved]
  - Neonatal respiratory distress syndrome [Recovered/Resolved]
  - Foetal growth restriction [Recovering/Resolving]
  - Foetal exposure during pregnancy [Recovering/Resolving]
